FAERS Safety Report 7016044-X (Version None)
Quarter: 2010Q3

REPORT INFORMATION
  Report Type: 
  Country: None (occurrence: None)
  Receive Date: 20100927
  Receipt Date: 20100917
  Transmission Date: 20110219
  Serious: Yes (Death)
  Sender: FDA-Public Use
  Company Number: GXKR2010GB10694

PATIENT
  Sex: Female

DRUGS (5)
  1. TRAMADOL (NGX) [Suspect]
     Dosage: 100 MG, BID
     Route: 048
  2. FELODIPINE [Concomitant]
     Dosage: 10 MG, QD
  3. ROSUVASTATIN [Concomitant]
     Dosage: 20 MG, QD
  4. ACETAMINOPHEN [Concomitant]
     Dosage: UNK
  5. CHONDROITIN A [Concomitant]

REACTIONS (1)
  - CARDIAC ARREST [None]
